FAERS Safety Report 13183968 (Version 1)
Quarter: 2017Q1

REPORT INFORMATION
  Report Type: Spontaneous
  Country: CA (occurrence: CA)
  Receive Date: 20170203
  Receipt Date: 20170203
  Transmission Date: 20170428
  Serious: Yes (Other)
  Sender: FDA-Public Use
  Company Number: CA-TEVA-735476ACC

PATIENT
  Age: 3 Month
  Sex: Female
  Weight: 5 kg

DRUGS (1)
  1. LANSOPRAZOLE. [Suspect]
     Active Substance: LANSOPRAZOLE
     Indication: GASTROOESOPHAGEAL REFLUX DISEASE
     Dosage: 10 MILLIGRAM DAILY;
     Route: 048

REACTIONS (3)
  - Aspiration [Unknown]
  - Drug ineffective [Unknown]
  - Oxygen saturation decreased [Unknown]
